FAERS Safety Report 23724737 (Version 1)
Quarter: 2024Q2

REPORT INFORMATION
  Report Type: Report from Study
  Country: US (occurrence: US)
  Receive Date: 20240409
  Receipt Date: 20240409
  Transmission Date: 20240716
  Serious: Yes (Other)
  Sender: FDA-Public Use
  Company Number: US-ABBVIE-5710078

PATIENT
  Age: 64 Year
  Sex: Male

DRUGS (1)
  1. SKYRIZI [Suspect]
     Active Substance: RISANKIZUMAB-RZAA
     Indication: Psoriasis
     Route: 058
     Dates: start: 20240128

REACTIONS (4)
  - Malignant melanoma [Unknown]
  - Joint injury [Recovered/Resolved]
  - Skin abrasion [Recovered/Resolved]
  - Wound infection [Recovered/Resolved]

NARRATIVE: CASE EVENT DATE: 20240219
